FAERS Safety Report 12688774 (Version 1)
Quarter: 2016Q3

REPORT INFORMATION
  Report Type: Spontaneous
  Country: US (occurrence: None)
  Receive Date: 20160825
  Receipt Date: 20160825
  Transmission Date: 20161109
  Serious: Yes (Hospitalization)
  Sender: FDA-Public Use
  Company Number: None

PATIENT
  Age: 50 Year
  Sex: Female
  Weight: 99.79 kg

DRUGS (9)
  1. CYMBALTA [Concomitant]
     Active Substance: DULOXETINE HYDROCHLORIDE
  2. BACLOFEN. [Concomitant]
     Active Substance: BACLOFEN
  3. DILAUDED [Concomitant]
  4. VITAMIN D [Concomitant]
     Active Substance: CHOLECALCIFEROL
  5. GEODON [Concomitant]
     Active Substance: ZIPRASIDONE HYDROCHLORIDE\ZIPRASIDONE MESYLATE
  6. ADDERALL [Concomitant]
     Active Substance: AMPHETAMINE ASPARTATE\AMPHETAMINE SULFATE\DEXTROAMPHETAMINE SACCHARATE\DEXTROAMPHETAMINE SULFATE
  7. VITAMIN B [Concomitant]
     Active Substance: VITAMIN B
  8. LAMICTAL [Concomitant]
     Active Substance: LAMOTRIGINE
  9. RECLAST [Suspect]
     Active Substance: ZOLEDRONIC ACID
     Indication: OSTEOPOROSIS POSTMENOPAUSAL
     Dosage: INTO A VEIN
     Route: 042
     Dates: start: 20160310, end: 20160310

REACTIONS (2)
  - Cardiac disorder [None]
  - Pain [None]

NARRATIVE: CASE EVENT DATE: 20160310
